FAERS Safety Report 18328811 (Version 1)
Quarter: 2020Q3

REPORT INFORMATION
  Report Type: Spontaneous
  Country: CA (occurrence: CA)
  Receive Date: 20200930
  Receipt Date: 20200930
  Transmission Date: 20201103
  Serious: Yes (Life-Threatening)
  Sender: FDA-Public Use
  Company Number: CA-TEVA-2020-CA-1832383

PATIENT
  Age: 44 Year
  Sex: Female

DRUGS (17)
  1. ISOTRETINOIN. [Suspect]
     Active Substance: ISOTRETINOIN
     Route: 065
  2. PREDNISONE. [Suspect]
     Active Substance: PREDNISONE
     Route: 065
  3. METRONIDAZOLE. [Suspect]
     Active Substance: METRONIDAZOLE
     Route: 061
  4. DAPSONE. [Suspect]
     Active Substance: DAPSONE
     Route: 065
  5. DAPSONE. [Suspect]
     Active Substance: DAPSONE
     Route: 061
  6. CLINDAMYCIN PHOSPHATE. [Suspect]
     Active Substance: CLINDAMYCIN PHOSPHATE
     Route: 065
  7. MOXIFLOXACIN HYDROCHLORIDE. [Suspect]
     Active Substance: MOXIFLOXACIN HYDROCHLORIDE
     Route: 065
  8. TETRACYCLINE [Suspect]
     Active Substance: TETRACYCLINE
     Route: 065
  9. ERTAPENEM. [Suspect]
     Active Substance: ERTAPENEM SODIUM
     Route: 042
  10. DOXYCYCLINE. [Suspect]
     Active Substance: DOXYCYCLINE
     Route: 065
  11. MINOCYCLINE HYDROCHLORIDE. [Suspect]
     Active Substance: MINOCYCLINE HYDROCHLORIDE
     Route: 048
  12. TRIAMCINOLONE [Suspect]
     Active Substance: TRIAMCINOLONE
     Route: 026
  13. RIFAMPICIN [Suspect]
     Active Substance: RIFAMPIN
     Route: 065
  14. METRONIDAZOLE. [Suspect]
     Active Substance: METRONIDAZOLE
     Route: 065
  15. AMOXICILLIN TRIHYDRATEW/CLAVULANATE POTASSIUM [Suspect]
     Active Substance: AMOXICILLIN\CLAVULANATE POTASSIUM
     Route: 065
  16. ZINC. [Suspect]
     Active Substance: ZINC
     Route: 065
  17. CLINDAMYCIN PHOSPHATE. [Suspect]
     Active Substance: CLINDAMYCIN PHOSPHATE
     Route: 061

REACTIONS (12)
  - Mobility decreased [Unknown]
  - Wound secretion [Unknown]
  - Skin odour abnormal [Unknown]
  - Drug intolerance [Unknown]
  - Treatment failure [Unknown]
  - Condition aggravated [Unknown]
  - Hidradenitis [Unknown]
  - Scar [Unknown]
  - Suicidal ideation [Unknown]
  - Pain [Unknown]
  - Skin lesion [Unknown]
  - Drug ineffective [Unknown]
